FAERS Safety Report 8414112-9 (Version None)
Quarter: 2012Q2

REPORT INFORMATION
  Report Type: 
  Country: None (occurrence: None)
  Receive Date: 20120323
  Receipt Date: 20110318
  Transmission Date: 20120825
  Serious: Yes (Hospitalization)
  Sender: FDA-Public Use
  Company Number: 163-21880-11022132

PATIENT
  Age: 72 Year
  Sex: Male

DRUGS (4)
  1. ASPIRIN [Concomitant]
  2. FENTANYL-100 [Concomitant]
  3. REVLIMID [Suspect]
     Indication: MULTIPLE MYELOMA
     Dosage: 5 MG, DAILY X 28 DAYS, PO, 5 MG, DAILY X 28 DAYS, PO
     Route: 048
     Dates: start: 20090927, end: 20110101
  4. REVLIMID [Suspect]
     Indication: MULTIPLE MYELOMA
     Dosage: 5 MG, DAILY X 28 DAYS, PO, 5 MG, DAILY X 28 DAYS, PO
     Route: 048
     Dates: start: 20110201

REACTIONS (2)
  - FULL BLOOD COUNT DECREASED [None]
  - PNEUMONIA [None]
